FAERS Safety Report 5471870-3 (Version None)
Quarter: 2007Q3

REPORT INFORMATION
  Report Type: 
  Country: None (occurrence: None)
  Receive Date: 20070928
  Receipt Date: 20070713
  Transmission Date: 20080115
  Serious: No
  Sender: FDA-Public Use
  Company Number: US-BRISTOL-MYERS SQUIBB COMPANY-13845904

PATIENT
  Sex: Female
  Weight: 77 kg

DRUGS (6)
  1. DEFINITY [Suspect]
     Route: 042
     Dates: start: 20070713, end: 20070713
  2. LIPITOR [Concomitant]
  3. PRILOSEC [Concomitant]
  4. MULTI-VITAMIN [Concomitant]
  5. NASONEX [Concomitant]
  6. PROTOPIC [Concomitant]

REACTIONS (1)
  - MUSCLE SPASMS [None]
